FAERS Safety Report 17029477 (Version 1)
Quarter: 2019Q4

REPORT INFORMATION
  Report Type: Spontaneous
  Country: TW (occurrence: TW)
  Receive Date: 20191114
  Receipt Date: 20191114
  Transmission Date: 20200122
  Serious: Yes (Hospitalization)
  Sender: FDA-Public Use
  Company Number: TW-SA-2019SA311137

PATIENT

DRUGS (1)
  1. CEREZYME [Suspect]
     Active Substance: IMIGLUCERASE
     Indication: GAUCHER^S DISEASE
     Dosage: UNK, UNK
     Route: 041

REACTIONS (4)
  - Secretion discharge [Unknown]
  - Nervous system disorder [Unknown]
  - Nasal congestion [Unknown]
  - Productive cough [Unknown]
